FAERS Safety Report 8183206-8 (Version None)
Quarter: 2012Q1

REPORT INFORMATION
  Report Type: 
  Country: None (occurrence: None)
  Receive Date: 20120305
  Receipt Date: 20120224
  Transmission Date: 20120608
  Serious: Yes (Hospitalization)
  Sender: FDA-Public Use
  Company Number: US-ASTELLAS-2012US000259

PATIENT
  Sex: Female
  Weight: 58 kg

DRUGS (4)
  1. PROGRAF [Suspect]
     Indication: LIVER TRANSPLANT
     Dosage: 4 MG, BID
     Route: 048
     Dates: start: 20110101
  2. PROGRAF [Suspect]
     Dosage: 1 MG, BID
     Route: 065
  3. BARACLUDE [Concomitant]
     Indication: HEPATITIS B
     Dosage: 1 MG, UID/QD
     Route: 048
  4. ENTECAVIR [Concomitant]
     Indication: PRODUCT USED FOR UNKNOWN INDICATION
     Dosage: 1 MG, UID/QD
     Route: 048

REACTIONS (7)
  - CONSTIPATION [None]
  - VOMITING [None]
  - LIVER TRANSPLANT REJECTION [None]
  - HEADACHE [None]
  - TREATMENT NONCOMPLIANCE [None]
  - LACERATION [None]
  - NAUSEA [None]
